FAERS Safety Report 15633349 (Version 2)
Quarter: 2018Q4

REPORT INFORMATION
  Report Type: Spontaneous
  Country: US (occurrence: US)
  Receive Date: 20181119
  Receipt Date: 20181120
  Transmission Date: 20190205
  Serious: Yes (Hospitalization, Other)
  Sender: FDA-Public Use
  Company Number: US-ROCHE-2216737

PATIENT
  Sex: Male

DRUGS (1)
  1. ACTEMRA [Suspect]
     Active Substance: TOCILIZUMAB
     Indication: TEMPORAL ARTERITIS
     Dosage: STRENGTH:162MG/0.9 ML, ONGOING; YES
     Route: 058
     Dates: start: 201806

REACTIONS (4)
  - Oesophageal candidiasis [Unknown]
  - Pneumonia [Unknown]
  - Immunodeficiency [Unknown]
  - Atrial fibrillation [Unknown]
